FAERS Safety Report 19251697 (Version 4)
Quarter: 2022Q2

REPORT INFORMATION
  Report Type: Spontaneous
  Country: IL (occurrence: IL)
  Receive Date: 20210512
  Receipt Date: 20220515
  Transmission Date: 20220721
  Serious: Yes (Hospitalization, Other)
  Sender: FDA-Public Use
  Company Number: IL-UCBSA-2021021381

PATIENT
  Age: 75 Year
  Sex: Male

DRUGS (5)
  1. LEVETIRACETAM [Suspect]
     Active Substance: LEVETIRACETAM
     Indication: Generalised tonic-clonic seizure
     Dosage: 500 MILLIGRAM, 2X/DAY (BID)
  2. APIXABAN [Concomitant]
     Active Substance: APIXABAN
     Indication: Anticoagulant therapy
     Dosage: 5 MILLIGRAM, 2X/DAY (BID)
     Route: 048
  3. CARBAMAZEPINE [Concomitant]
     Active Substance: CARBAMAZEPINE
     Indication: Generalised tonic-clonic seizure
     Dosage: 400 MILLIGRAM, 2X/DAY (BID)
  4. LAMOTRIGINE [Concomitant]
     Active Substance: LAMOTRIGINE
     Indication: Generalised tonic-clonic seizure
     Dosage: 100 MILLIGRAM, 2X/DAY (BID)
  5. VALPROIC ACID [Concomitant]
     Active Substance: VALPROIC ACID
     Indication: Generalised tonic-clonic seizure
     Dosage: 500 MILLIGRAM, 2X/DAY (BID)

REACTIONS (9)
  - Cognitive disorder [Recovered/Resolved]
  - Memory impairment [Recovered/Resolved]
  - Disturbance in attention [Recovered/Resolved]
  - Balance disorder [Recovering/Resolving]
  - Fall [Recovered/Resolved]
  - Urinary incontinence [Recovered/Resolved]
  - Depressed level of consciousness [Recovered/Resolved]
  - General physical health deterioration [Recovered/Resolved]
  - Gait disturbance [Recovered/Resolved]
